FAERS Safety Report 9601390 (Version 3)
Quarter: 2013Q4

REPORT INFORMATION
  Report Type: Spontaneous
  Country: CA (occurrence: CA)
  Receive Date: 20131007
  Receipt Date: 20131122
  Transmission Date: 20140711
  Serious: Yes (Other)
  Sender: FDA-Public Use
  Company Number: CA-BIOGENIDEC-2013BI096048

PATIENT
  Age: 45 Year
  Sex: Female

DRUGS (1)
  1. TYSABRI [Suspect]
     Indication: MULTIPLE SCLEROSIS
     Route: 042
     Dates: start: 20130811

REACTIONS (4)
  - Grand mal convulsion [Recovered/Resolved]
  - Loss of consciousness [Unknown]
  - Convulsion [Unknown]
  - Asthenia [Not Recovered/Not Resolved]
